FAERS Safety Report 13024154 (Version 4)
Quarter: 2017Q1

REPORT INFORMATION
  Report Type: Spontaneous
  Country: US (occurrence: US)
  Receive Date: 20161213
  Receipt Date: 20170324
  Transmission Date: 20170428
  Serious: Yes (Hospitalization)
  Sender: FDA-Public Use
  Company Number: US-PFIZER INC-2016570901

PATIENT
  Age: 72 Year
  Sex: Female

DRUGS (2)
  1. FLAGYL [Suspect]
     Active Substance: METRONIDAZOLE\METRONIDAZOLE HYDROCHLORIDE
     Indication: VULVOVAGINAL PRURITUS
  2. FLAGYL [Suspect]
     Active Substance: METRONIDAZOLE\METRONIDAZOLE HYDROCHLORIDE
     Indication: GENITAL INFECTION FEMALE
     Dosage: 250 MG, UNK
     Dates: start: 198409

REACTIONS (3)
  - Drug hypersensitivity [Recovered/Resolved]
  - Swelling [Unknown]
  - Hypotension [Unknown]

NARRATIVE: CASE EVENT DATE: 198409
